FAERS Safety Report 12602967 (Version 1)
Quarter: 2016Q3

REPORT INFORMATION
  Report Type: Report from Study
  Country: ES (occurrence: ES)
  Receive Date: 20160728
  Receipt Date: 20160728
  Transmission Date: 20161109
  Serious: Yes (Hospitalization)
  Sender: FDA-Public Use
  Company Number: ES-BAYER-2016-142339

PATIENT
  Age: 90 Year
  Sex: Female

DRUGS (7)
  1. AMOXICILINA + CLAVULANICO [Concomitant]
     Active Substance: AMOXICILLIN\CLAVULANIC ACID
     Dosage: 1 DF, TID
     Route: 042
     Dates: start: 20150303
  2. HIBOR [Interacting]
     Active Substance: BEMIPARIN SODIUM
     Indication: PERIPHERAL ISCHAEMIA
     Dosage: 5000 IU, QD
     Route: 058
     Dates: start: 20150303, end: 20150312
  3. LOSARTAN. [Concomitant]
     Active Substance: LOSARTAN
     Indication: HYPERTENSION
     Dosage: 50 MG, QD
     Route: 048
     Dates: start: 2010
  4. METAMIZOL [Concomitant]
     Active Substance: METAMIZOLE SODIUM
     Indication: PAIN
     Dosage: 2 G, TID
     Route: 042
     Dates: start: 20150303
  5. TRAMADOL. [Concomitant]
     Active Substance: TRAMADOL
     Indication: PAIN
     Dosage: 100 MG, TID
     Route: 048
     Dates: start: 20150303
  6. MORFINA MIRO [Concomitant]
     Indication: PAIN
     Dosage: 5 MG, QID
     Route: 058
     Dates: start: 20150303
  7. ADIRO 100 MG COMPRIMIDOS GASTRORRESISTENTES EFG , 30 COMPRIMIDOS [Suspect]
     Active Substance: ASPIRIN
     Indication: MYOCARDIAL ISCHAEMIA
     Dosage: 100 MG, QD
     Route: 048
     Dates: start: 2010

REACTIONS (1)
  - Anaemia [Recovered/Resolved]

NARRATIVE: CASE EVENT DATE: 20150312
